FAERS Safety Report 8580739-7 (Version None)
Quarter: 2012Q3

REPORT INFORMATION
  Report Type: 
  Country: None (occurrence: None)
  Receive Date: 20120809
  Receipt Date: 20120801
  Transmission Date: 20120928
  Serious: No
  Sender: FDA-Public Use
  Company Number: US-BIOGENIDEC-2012BI029071

PATIENT
  Sex: Female

DRUGS (2)
  1. AVONEX [Concomitant]
     Indication: MULTIPLE SCLEROSIS
     Route: 030
     Dates: start: 20030610
  2. TYSABRI [Suspect]
     Indication: MULTIPLE SCLEROSIS
     Route: 042
     Dates: start: 20081201, end: 20111104

REACTIONS (12)
  - DEPRESSION [None]
  - PAIN [None]
  - INCONTINENCE [None]
  - MOBILITY DECREASED [None]
  - BALANCE DISORDER [None]
  - CONFUSIONAL STATE [None]
  - MEMORY IMPAIRMENT [None]
  - PSYCHIATRIC SYMPTOM [None]
  - FALL [None]
  - MUSCULOSKELETAL PAIN [None]
  - CENTRAL VENOUS CATHETERISATION [None]
  - EMOTIONAL DISORDER [None]
